FAERS Safety Report 9228162 (Version 2)
Quarter: 2013Q2

REPORT INFORMATION
  Report Type: Report from Study
  Country: FR (occurrence: FR)
  Receive Date: 20130412
  Receipt Date: 20130521
  Transmission Date: 20140414
  Serious: Yes (Death, Other)
  Sender: FDA-Public Use
  Company Number: FR-ROCHE-1210988

PATIENT
  Sex: 0

DRUGS (3)
  1. ALTEPLASE [Suspect]
     Indication: PULMONARY EMBOLISM
     Route: 065
  2. STREPTOKINASE [Suspect]
     Indication: PULMONARY EMBOLISM
     Route: 065
  3. UNFRACTIONATED HEPARIN [Suspect]
     Indication: PULMONARY EMBOLISM
     Route: 042

REACTIONS (6)
  - Pulmonary embolism [Fatal]
  - Cardiogenic shock [Fatal]
  - Haemorrhage [Fatal]
  - Deep vein thrombosis [Unknown]
  - Deep vein thrombosis [Unknown]
  - Drug ineffective [Unknown]
